FAERS Safety Report 18870134 (Version 1)
Quarter: 2021Q1

REPORT INFORMATION
  Report Type: Spontaneous
  Country: GB (occurrence: GB)
  Receive Date: 20210209
  Receipt Date: 20210209
  Transmission Date: 20210420
  Serious: Yes (Other)
  Sender: FDA-Public Use
  Company Number: GB-JAZZ-2021-GB-001807

PATIENT
  Age: 71 Year

DRUGS (2)
  1. VYXEOS [Suspect]
     Active Substance: CYTARABINE\DAUNORUBICIN
     Indication: ACUTE MYELOID LEUKAEMIA
     Dosage: VYXEOS DAY 1,3,5
     Dates: start: 20190401, end: 20190513
  2. VYXEOS [Suspect]
     Active Substance: CYTARABINE\DAUNORUBICIN
     Dosage: VYXEOS ON DAY1, 3
     Dates: start: 20190520, end: 20190625

REACTIONS (8)
  - Mitral valve prolapse [Unknown]
  - Streptococcal infection [Unknown]
  - Endocarditis [Unknown]
  - Rash [Unknown]
  - Febrile neutropenia [Unknown]
  - Deep vein thrombosis [Unknown]
  - Sepsis [Unknown]
  - Drug hypersensitivity [Unknown]

NARRATIVE: CASE EVENT DATE: 2019
